FAERS Safety Report 7631466-1 (Version None)
Quarter: 2011Q3

REPORT INFORMATION
  Report Type: 
  Country: None (occurrence: None)
  Receive Date: 20110725
  Receipt Date: 20110720
  Transmission Date: 20111222
  Serious: Yes (Death, Other)
  Sender: FDA-Public Use
  Company Number: PHHY2011IR65438

PATIENT
  Age: 2 Year
  Sex: Male

DRUGS (2)
  1. PREDNISOLONE [Concomitant]
     Dosage: 5 MG, DAILY
  2. TACROLIMUS [Suspect]
     Indication: IMMUNOSUPPRESSION
     Dosage: 0.15 MG/KG, DAILY

REACTIONS (12)
  - AORTIC VALVE STENOSIS [None]
  - PYREXIA [None]
  - HYPERTROPHIC CARDIOMYOPATHY [None]
  - DEATH [None]
  - CARDIAC MURMUR [None]
  - VENTRICULAR HYPERTROPHY [None]
  - DYSPNOEA [None]
  - BLOOD PRESSURE INCREASED [None]
  - VENTRICULAR SEPTAL DEFECT [None]
  - LYMPHADENOPATHY [None]
  - TACHYCARDIA [None]
  - EPSTEIN-BARR VIRUS ASSOCIATED LYMPHOPROLIFERATIVE DISORDER [None]
